FAERS Safety Report 21346339 (Version 4)
Quarter: 2022Q4

REPORT INFORMATION
  Report Type: Report from Study
  Country: MA (occurrence: MA)
  Receive Date: 20220917
  Receipt Date: 20221213
  Transmission Date: 20230112
  Serious: No
  Sender: FDA-Public Use
  Company Number: MA-NOVARTISPH-NVSC2022MA208142

PATIENT
  Sex: Female

DRUGS (2)
  1. COSENTYX [Suspect]
     Active Substance: SECUKINUMAB
     Indication: Ankylosing spondylitis
     Dosage: 150 MG, QMO
     Route: 058
     Dates: start: 20190709
  2. COSENTYX [Suspect]
     Active Substance: SECUKINUMAB
     Dosage: 150 MG, QMO (BEGINNING OF THE MONTH)
     Route: 058

REACTIONS (5)
  - Feeling abnormal [Unknown]
  - Hypoaesthesia [Unknown]
  - Fatigue [Unknown]
  - Movement disorder [Unknown]
  - Limb discomfort [Unknown]
